FAERS Safety Report 12688530 (Version 3)
Quarter: 2020Q3

REPORT INFORMATION
  Report Type: Spontaneous
  Country: US (occurrence: US)
  Receive Date: 20160826
  Receipt Date: 20200820
  Transmission Date: 20201102
  Serious: No
  Sender: FDA-Public Use
  Company Number: US-CIPLA LTD.-2016US07208

PATIENT

DRUGS (1)
  1. TERBINAFINE. [Suspect]
     Active Substance: TERBINAFINE
     Indication: PRODUCT USED FOR UNKNOWN INDICATION
     Dosage: UNK
     Route: 048

REACTIONS (5)
  - Bowel movement irregularity [Unknown]
  - Abdominal distension [Unknown]
  - Eructation [Unknown]
  - Dyspepsia [Unknown]
  - Flatulence [Unknown]
